FAERS Safety Report 9237175 (Version 1)
Quarter: 2013Q2

REPORT INFORMATION
  Report Type: Spontaneous
  Country: CA (occurrence: CA)
  Receive Date: 20130417
  Receipt Date: 20130417
  Transmission Date: 20140414
  Serious: Yes (Hospitalization)
  Sender: FDA-Public Use
  Company Number: CA-TEVA-399026USA

PATIENT
  Age: 74 Year
  Sex: Male
  Weight: 79 kg

DRUGS (9)
  1. AMIODARONE [Suspect]
     Dosage: 200 MILLIGRAM DAILY;
     Route: 048
  2. ASA [Concomitant]
  3. ATORVASTATIN CALCIUM [Concomitant]
  4. COUMADIN [Concomitant]
  5. COVERSYL [Concomitant]
  6. FOLIC ACID [Concomitant]
  7. GLUCOSAMINE [Concomitant]
  8. VITAMIN B12 [Concomitant]
  9. VITAMIN D [Concomitant]

REACTIONS (9)
  - International normalised ratio increased [Not Recovered/Not Resolved]
  - Oxygen saturation decreased [Not Recovered/Not Resolved]
  - Oxygen supplementation [Not Recovered/Not Resolved]
  - Chest pain [Not Recovered/Not Resolved]
  - Dyspnoea [Not Recovered/Not Resolved]
  - Haemoptysis [Not Recovered/Not Resolved]
  - Pleural effusion [Not Recovered/Not Resolved]
  - Pneumonia [Not Recovered/Not Resolved]
  - Pulmonary toxicity [Not Recovered/Not Resolved]
